FAERS Safety Report 8815754 (Version 1)
Quarter: 2012Q4

REPORT INFORMATION
  Report Type: 
  Country: US (occurrence: US)
  Receive Date: 20120928
  Receipt Date: 20120928
  Transmission Date: 20130627
  Serious: Yes (Other)
  Sender: FDA-Public Use
  Company Number: US-009507513-1209USA010007

PATIENT
  Age: 50 Year
  Sex: Female

DRUGS (2)
  1. VICTRELIS [Suspect]
     Dosage: 200 mg, UNK
     Route: 048
  2. PEGINTRON [Suspect]

REACTIONS (1)
  - Osteonecrosis [Unknown]
